FAERS Safety Report 21997320 (Version 1)
Quarter: 2023Q1

REPORT INFORMATION
  Report Type: Spontaneous
  Country: US (occurrence: US)
  Receive Date: 20230216
  Receipt Date: 20230216
  Transmission Date: 20230418
  Serious: No
  Sender: FDA-Public Use
  Company Number: US-ELI_LILLY_AND_COMPANY-US202301011376

PATIENT
  Sex: Male

DRUGS (5)
  1. BASAGLAR [Suspect]
     Active Substance: INSULIN GLARGINE
     Indication: Product used for unknown indication
     Dosage: 26 U, UNKNOWN
     Route: 065
  2. GLIMEPIRIDE [Suspect]
     Active Substance: GLIMEPIRIDE
     Indication: Diabetes mellitus
     Dosage: 2 DOSAGE FORM, EACH MORNING
     Route: 065
  3. GLIMEPIRIDE [Suspect]
     Active Substance: GLIMEPIRIDE
     Dosage: 2 DOSAGE FORM, EACH EVENING
     Route: 065
  4. GLIMEPIRIDE [Suspect]
     Active Substance: GLIMEPIRIDE
     Dosage: 1 DOSAGE FORM, EACH MORNING
     Route: 065
  5. GLIMEPIRIDE [Suspect]
     Active Substance: GLIMEPIRIDE
     Dosage: 1 DOSAGE FORM, EACH EVENING
     Route: 065

REACTIONS (8)
  - Feeling jittery [Unknown]
  - Tremor [Unknown]
  - Glycosylated haemoglobin increased [Unknown]
  - Blood glucose increased [Unknown]
  - Back pain [Not Recovered/Not Resolved]
  - Neck pain [Unknown]
  - Headache [Recovered/Resolved]
  - Pruritus [Unknown]
